FAERS Safety Report 25437869 (Version 1)
Quarter: 2025Q2

REPORT INFORMATION
  Report Type: Spontaneous
  Country: US (occurrence: US)
  Receive Date: 20250616
  Receipt Date: 20250616
  Transmission Date: 20250717
  Serious: No
  Sender: ENDO
  Company Number: US-ENDO USA, INC.-2025-001105

PATIENT
  Sex: Male

DRUGS (3)
  1. SUPPRELIN LA [Suspect]
     Active Substance: HISTRELIN ACETATE
     Indication: Product used for unknown indication
     Route: 058
     Dates: start: 20250213, end: 20250418
  2. SUPPRELIN LA [Suspect]
     Active Substance: HISTRELIN ACETATE
     Indication: Product used for unknown indication
     Route: 058
     Dates: start: 20250213, end: 20250418
  3. SUPPRELIN LA [Suspect]
     Active Substance: HISTRELIN ACETATE
     Indication: Product used for unknown indication
     Route: 058
     Dates: start: 20250213, end: 20250418

REACTIONS (5)
  - Implant site erythema [Unknown]
  - Implant site pain [Recovered/Resolved]
  - Incorrect product administration duration [Recovered/Resolved]
  - Off label use [Recovered/Resolved]
  - Device extrusion [Recovered/Resolved]

NARRATIVE: CASE EVENT DATE: 20250101
